FAERS Safety Report 8043755-X (Version None)
Quarter: 2012Q1

REPORT INFORMATION
  Report Type: 
  Country: None (occurrence: None)
  Receive Date: 20120113
  Receipt Date: 20120105
  Transmission Date: 20120608
  Serious: Yes (Hospitalization)
  Sender: FDA-Public Use
  Company Number: US-BIOGENIDEC-2012BI000654

PATIENT
  Age: 36 Year
  Sex: Female

DRUGS (2)
  1. EXCEDRIN (MIGRAINE) [Concomitant]
     Indication: PREMEDICATION
  2. AVONEX [Suspect]
     Indication: MULTIPLE SCLEROSIS
     Route: 030
     Dates: start: 20110527

REACTIONS (15)
  - BLOOD GLUCOSE DECREASED [None]
  - NASOPHARYNGITIS [None]
  - BRONCHITIS [None]
  - COMPLICATED MIGRAINE [None]
  - INFLUENZA LIKE ILLNESS [None]
  - CONCUSSION [None]
  - LOSS OF CONSCIOUSNESS [None]
  - ORAL CANDIDIASIS [None]
  - DIZZINESS [None]
  - MULTIPLE SCLEROSIS [None]
  - MULTIPLE SCLEROSIS RELAPSE [None]
  - VISION BLURRED [None]
  - FALL [None]
  - HEAD INJURY [None]
  - DRUG HYPERSENSITIVITY [None]
